FAERS Safety Report 4416930-0 (Version None)
Quarter: 2004Q3

REPORT INFORMATION
  Report Type: 
  Country: None (occurrence: None)
  Receive Date: 20040806
  Receipt Date: 20040728
  Transmission Date: 20050211
  Serious: Yes (Death, Life-Threatening)
  Sender: FDA-Public Use
  Company Number: JP-BRISTOL-MYERS SQUIBB COMPANY-12654315

PATIENT
  Age: 51 Year
  Sex: Male

DRUGS (5)
  1. MITOMYCIN-C BULK POWDER [Suspect]
     Indication: HEPATIC CANCER METASTATIC
     Dosage: COMMENCED THERAPY 26-JUN-2004
     Route: 013
     Dates: start: 20030126, end: 20040210
  2. FURTULON [Suspect]
     Indication: HEPATIC CANCER METASTATIC
     Dosage: THERAPY DATES 26-JUN-2003 TO 18-AUG-2003
     Route: 048
     Dates: start: 20030626, end: 20030818
  3. FLUOROURACIL [Concomitant]
     Route: 013
     Dates: start: 20030424, end: 20030617
  4. ISOVORIN [Concomitant]
     Route: 013
     Dates: start: 20030424, end: 20030617
  5. DIOVAN [Concomitant]
     Route: 048
     Dates: start: 20030529

REACTIONS (2)
  - GASTRIC ULCER PERFORATION [None]
  - RECTAL CANCER METASTATIC [None]
